FAERS Safety Report 4300207-8 (Version None)
Quarter: 2004Q1

REPORT INFORMATION
  Report Type: 
  Country: None (occurrence: None)
  Receive Date: 20040218
  Receipt Date: 20040205
  Transmission Date: 20041129
  Serious: Yes (Other)
  Sender: FDA-Public Use
  Company Number: 2004007703

PATIENT
  Age: 15 Year
  Sex: Male

DRUGS (2)
  1. ZOLOFT [Suspect]
     Indication: ANXIETY
  2. AMPHETAMINES [Concomitant]

REACTIONS (2)
  - AGGRESSION [None]
  - SEXUAL ABUSE [None]
